FAERS Safety Report 7235213-7 (Version None)
Quarter: 2011Q1

REPORT INFORMATION
  Report Type: 
  Country: None (occurrence: None)
  Receive Date: 20110120
  Receipt Date: 20110113
  Transmission Date: 20110831
  Serious: Yes (Death, Life-Threatening, Hospitalization)
  Sender: FDA-Public Use
  Company Number: TH-NOVOPROD-317817

PATIENT
  Age: 8 Year
  Sex: Male
  Weight: 16 kg

DRUGS (18)
  1. CEFAZOLIN [Concomitant]
     Dosage: 570 MG, TID
     Route: 042
     Dates: start: 20100616, end: 20100618
  2. MIDAZOLAM [Concomitant]
     Dosage: UNK
     Dates: start: 20100623, end: 20100623
  3. CHLORAL HYDRATE [Suspect]
     Dosage: UNK
     Dates: start: 20100615, end: 20100615
  4. MORPHINE [Concomitant]
     Dosage: UNK
     Dates: start: 20100616, end: 20100617
  5. FRESH FROZEN PLASMA [Concomitant]
     Dosage: 10 ML/KG.
     Dates: start: 20100617
  6. DILANTIN [Concomitant]
     Dosage: 250 MG, QD
     Route: 042
     Dates: start: 20100615, end: 20100617
  7. MIDAZOLAM [Concomitant]
     Dosage: UNK
     Dates: start: 20100615, end: 20100615
  8. FENTANYL [Concomitant]
     Dosage: UNK
     Dates: start: 20100616, end: 20100616
  9. FERROUS SULFATE [Concomitant]
     Dosage: UNK
     Dates: start: 20100615, end: 20100616
  10. PARACETAMOL [Concomitant]
     Dosage: UNK
     Dates: start: 20100615, end: 20100621
  11. OMEPRAZOLE [Concomitant]
     Dosage: UNK
     Dates: start: 20100615, end: 20100620
  12. NOVOSEVEN [Suspect]
     Indication: FACTOR VII DEFICIENCY
     Dosage: 400 UG, QID
     Dates: start: 20100615, end: 20100616
  13. NOVOSEVEN [Suspect]
     Dosage: 300 UG, QID
     Dates: start: 20100617, end: 20100619
  14. NOVOSEVEN [Suspect]
     Dosage: 200 UG, QID
     Dates: start: 20100620, end: 20100621
  15. DEXAMETHASONE [Concomitant]
     Dosage: 3.5 MG, TID
     Dates: start: 20100615, end: 20100621
  16. FUROSEMIDE [Concomitant]
     Dosage: UNK
     Dates: start: 20100615, end: 20100628
  17. DIAZEPAM [Concomitant]
     Dosage: UNK
     Dates: start: 20100615, end: 20100615
  18. PHENYTOIN [Concomitant]
     Dosage: UNK
     Dates: start: 20100615, end: 20100621

REACTIONS (2)
  - CEREBRAL INFARCTION [None]
  - GASTROINTESTINAL HAEMORRHAGE [None]
